FAERS Safety Report 7297262-2 (Version None)
Quarter: 2011Q1

REPORT INFORMATION
  Report Type: 
  Country: None (occurrence: None)
  Receive Date: 20110216
  Receipt Date: 20110210
  Transmission Date: 20110831
  Serious: Yes (Hospitalization)
  Sender: FDA-Public Use
  Company Number: DE-ELI_LILLY_AND_COMPANY-DE201102002919

PATIENT
  Age: 59 Year
  Sex: Male
  Weight: 68 kg

DRUGS (3)
  1. SIOFOR [Concomitant]
     Indication: DIABETES MELLITUS
     Dosage: 1700 MG, UNK
     Route: 048
     Dates: start: 20060101
  2. OLANZAPINE LONG-ACTING IM [Suspect]
     Indication: SCHIZOPHRENIA
     Dosage: 210 MG, UNK
     Route: 030
     Dates: start: 20101116
  3. BIPERIDEN HYDROCHLORIDE TAB [Concomitant]
     Indication: PARKINSONISM
     Dosage: 10 MG, UNK
     Route: 048
     Dates: start: 20061101

REACTIONS (2)
  - PARANOIA [None]
  - HALLUCINATION [None]
